FAERS Safety Report 8805723 (Version 1)
Quarter: 2012Q4

REPORT INFORMATION
  Report Type: Spontaneous
  Country: FR (occurrence: None)
  Receive Date: 20120917
  Receipt Date: 20120917
  Transmission Date: 20130627
  Serious: Yes (Hospitalization)
  Sender: FDA-Public Use
  Company Number: 2012P1056408

PATIENT
  Age: 6 Year
  Sex: Female
  Weight: 18 kg

DRUGS (2)
  1. ALBENAZOLE [Suspect]
     Route: 048
     Dates: start: 20120718, end: 20120720
  2. ALBENAZOLE [Suspect]
     Route: 048
     Dates: start: 20120803, end: 20120803

REACTIONS (7)
  - General physical condition normal [None]
  - Hepatomegaly [None]
  - Haemangioma [None]
  - Hepatocellular injury [None]
  - Consciousness fluctuating [None]
  - Hypophosphataemia [None]
  - Autoimmune hepatitis [None]
